FAERS Safety Report 5275452-8 (Version None)
Quarter: 2007Q1

REPORT INFORMATION
  Report Type: 
  Country: None (occurrence: None)
  Receive Date: 20070326
  Receipt Date: 20070313
  Transmission Date: 20070707
  Serious: Yes (Hospitalization)
  Sender: FDA-Public Use
  Company Number: US-ROCHE-473312

PATIENT
  Age: 66 Year
  Sex: Male
  Weight: 79.4 kg

DRUGS (5)
  1. TAMIFLU [Suspect]
     Route: 048
     Dates: start: 20061027, end: 20061030
  2. BENICAR [Concomitant]
     Indication: HYPERTENSION
     Route: 048
  3. WELLBUTRIN [Concomitant]
     Dosage: GENERIC REPORTED AS BUPROPION HYDROCHLORIDE.
     Route: 048
  4. NEXIUM [Concomitant]
     Route: 048
  5. FLOMAX [Concomitant]
     Dosage: GENERIC REPORTED AS TAMSULOSIN HYDROCHLORIDE.
     Route: 048

REACTIONS (4)
  - DELUSION [None]
  - HALLUCINATION, VISUAL [None]
  - PNEUMONIA [None]
  - WEIGHT DECREASED [None]
